FAERS Safety Report 5852880-0 (Version None)
Quarter: 2008Q3

REPORT INFORMATION
  Report Type: 
  Country: None (occurrence: None)
  Receive Date: 20080821
  Receipt Date: 20080811
  Transmission Date: 20090109
  Serious: Yes (Death)
  Sender: FDA-Public Use
  Company Number: IT-ELI_LILLY_AND_COMPANY-IT200808002791

PATIENT

DRUGS (1)
  1. GEMZAR [Suspect]
     Indication: NON-SMALL CELL LUNG CANCER
     Dosage: 1200 MG/M2, LOMG/M(2)/MIN MIN) ON MIN) MIN) ON DAYS 1 AND 8 OF EACH CYCLE.
     Route: 065

REACTIONS (1)
  - HAEMOPTYSIS [None]
